FAERS Safety Report 6361506-1 (Version None)
Quarter: 2009Q3

REPORT INFORMATION
  Report Type: 
  Country: None (occurrence: None)
  Receive Date: 20090918
  Receipt Date: 20090914
  Transmission Date: 20100115
  Serious: Yes (Hospitalization)
  Sender: FDA-Public Use
  Company Number: DE-BAYER-200932169GPV

PATIENT
  Age: 78 Year
  Weight: 80 kg

DRUGS (9)
  1. NEXAVAR [Suspect]
     Indication: RENAL CELL CARCINOMA
  2. ASPIRIN [Concomitant]
  3. PANTOZOL [Concomitant]
  4. TARGIN [Concomitant]
  5. FURO [Concomitant]
  6. NEBILET [Concomitant]
  7. TAMSULOSIN [Concomitant]
  8. CIBADREX [Concomitant]
  9. SPIRO [Concomitant]

REACTIONS (3)
  - CONSTIPATION [None]
  - DYSGEUSIA [None]
  - DYSPNOEA [None]
